FAERS Safety Report 17765851 (Version 3)
Quarter: 2020Q3

REPORT INFORMATION
  Report Type: Spontaneous
  Country: ES (occurrence: ES)
  Receive Date: 20200511
  Receipt Date: 20200710
  Transmission Date: 20201102
  Serious: Yes (Other)
  Sender: FDA-Public Use
  Company Number: ES-ASTRAZENECA-2020SE60519

PATIENT
  Age: 24669 Day
  Sex: Female
  Weight: 60 kg

DRUGS (8)
  1. OLAPARIB. [Suspect]
     Active Substance: OLAPARIB
     Indication: OVARIAN CANCER
     Route: 048
     Dates: start: 20200414
  2. ROSUVASTATIN. [Concomitant]
     Active Substance: ROSUVASTATIN
  3. PARACETAMOL [Concomitant]
     Active Substance: ACETAMINOPHEN
  4. BARNIDIPINE [Concomitant]
     Active Substance: BARNIDIPINE
  5. MAGNESIUM [Concomitant]
     Active Substance: MAGNESIUM
     Dosage: TABLET 2 DAILY
  6. CARBONATED CALCIUM [Concomitant]
     Dosage: 2.5 SACHET EVERY DAY
  7. EMCORETIC [Concomitant]
     Active Substance: BISOPROLOL FUMARATE\HYDROCHLOROTHIAZIDE
     Dosage: 10/25 MG /24 H
  8. OLAPARIB. [Suspect]
     Active Substance: OLAPARIB
     Indication: OVARIAN CANCER
     Route: 048
     Dates: end: 20200521

REACTIONS (3)
  - Renal failure [Recovering/Resolving]
  - Nephropathy toxic [Unknown]
  - Off label use [Recovered/Resolved]

NARRATIVE: CASE EVENT DATE: 20200414
